FAERS Safety Report 5711916-8 (Version None)
Quarter: 2008Q2

REPORT INFORMATION
  Report Type: 
  Country: None (occurrence: None)
  Receive Date: 20080421
  Receipt Date: 20080411
  Transmission Date: 20081010
  Serious: Yes (Other)
  Sender: FDA-Public Use
  Company Number: CA-PFIZER INC-2008032821

PATIENT
  Age: 44 Year
  Sex: Female

DRUGS (3)
  1. CHAMPIX [Suspect]
     Route: 048
  2. SPIRIVA [Concomitant]
  3. VENTOLIN [Concomitant]

REACTIONS (2)
  - HEART RATE IRREGULAR [None]
  - HYPERTENSION [None]
